FAERS Safety Report 22145825 (Version 1)
Quarter: 2023Q1

REPORT INFORMATION
  Report Type: Spontaneous
  Country: CZ (occurrence: CZ)
  Receive Date: 20230328
  Receipt Date: 20230328
  Transmission Date: 20230417
  Serious: Yes (Hospitalization, Other)
  Sender: FDA-Public Use
  Company Number: CZ-EMA-DD-20230228-225467-090558

PATIENT
  Age: 38 Year
  Sex: Male

DRUGS (8)
  1. ESCITALOPRAM [Suspect]
     Active Substance: ESCITALOPRAM OXALATE
     Indication: Product used for unknown indication
     Dosage: 20 MG, QD, ONCE DAILY IN THE MORNING
  2. DIAZEPAM [Suspect]
     Active Substance: DIAZEPAM
     Indication: Restlessness
     Dosage: 10 MILLIGRAM (WITH SIGNIFICANT RESTLESSNESS, CAN BE APPLIED AGAIN AFTER 4 HOURS)
  3. MORPHINE [Suspect]
     Active Substance: MORPHINE
     Indication: Analgesic therapy
     Dosage: 10 MG S.C. AS NEEDED, A MAXIMUM OF 6 TIMES A DAY WITH A MINIMUM INTERVAL?OF 4 HOURS,
  4. FENTANYL [Suspect]
     Active Substance: FENTANYL
     Indication: Back pain
     Dosage: 250 MCG, QH
  5. LACTULOSE [Concomitant]
     Active Substance: LACTULOSE
     Indication: Product used for unknown indication
     Dosage: 45 ML, QD (15 ML, TID)
  6. MORPHINE [Suspect]
     Active Substance: MORPHINE
     Indication: Analgesic therapy
     Dosage: 10 MG, PRN (AS NEEDED)
  7. FENTANYL [Suspect]
     Active Substance: FENTANYL
     Indication: Back pain
     Dosage: 200 MCG, QH
  8. FENTANYL [Suspect]
     Active Substance: FENTANYL
     Indication: Back pain
     Dosage: 300 MCG, QH, 100 MCG DAILY, EACH 3 DAY TRANSDERMALLY
     Route: 062

REACTIONS (16)
  - Somnolence [Recovered/Resolved]
  - Sopor [Recovered/Resolved]
  - Altered state of consciousness [Recovered/Resolved]
  - Incorrect route of product administration [Unknown]
  - Restlessness [Recovered/Resolved]
  - Drug dependence [Unknown]
  - Thirst decreased [Recovered/Resolved]
  - Drug withdrawal syndrome [Recovered/Resolved]
  - Constipation [Recovered/Resolved]
  - Hyperaesthesia [Recovered/Resolved]
  - Neck pain [Recovered/Resolved]
  - Psychomotor hyperactivity [Recovered/Resolved]
  - Eating disorder [Recovered/Resolved]
  - Wrong technique in product usage process [Unknown]
  - Drug abuse [Unknown]
  - Headache [Recovered/Resolved]
